FAERS Safety Report 7533416-5 (Version None)
Quarter: 2011Q2

REPORT INFORMATION
  Report Type: 
  Country: None (occurrence: None)
  Receive Date: 20110608
  Receipt Date: 20051104
  Transmission Date: 20111010
  Serious: Yes (Other)
  Sender: FDA-Public Use
  Company Number: PHFR2005IE02334

PATIENT
  Sex: Female

DRUGS (2)
  1. CLOZAPINE [Suspect]
     Indication: SCHIZOPHRENIA
     Dosage: 400 MG, QD
     Route: 065
     Dates: start: 20030310
  2. IBUPROFEN [Suspect]

REACTIONS (2)
  - ABDOMINAL PAIN UPPER [None]
  - CHOLELITHIASIS [None]
